FAERS Safety Report 9014463 (Version 1)
Quarter: 2013Q1

REPORT INFORMATION
  Report Type: Spontaneous
  Country: US (occurrence: US)
  Receive Date: 20130115
  Receipt Date: 20130115
  Transmission Date: 20140127
  Serious: Yes (Disabling)
  Sender: FDA-Public Use
  Company Number: US-GLAXOSMITHKLINE-A1008201A

PATIENT
  Sex: 0

DRUGS (2)
  1. POTIGA [Suspect]
     Indication: PARTIAL SEIZURES
     Route: 048
     Dates: start: 2012
  2. SEIZURE MEDICATION [Concomitant]

REACTIONS (1)
  - Convulsion [Unknown]
